FAERS Safety Report 7651369-6 (Version None)
Quarter: 2011Q3

REPORT INFORMATION
  Report Type: 
  Country: None (occurrence: None)
  Receive Date: 20110802
  Receipt Date: 20110721
  Transmission Date: 20111222
  Serious: Yes (Hospitalization, Other)
  Sender: FDA-Public Use
  Company Number: PHEH2010US03426

PATIENT
  Sex: Female

DRUGS (14)
  1. ZOMETA [Suspect]
  2. TAXOTERE [Concomitant]
     Dosage: 45 MG,
     Route: 042
  3. POTASSIUM CHLORIDE [Concomitant]
  4. TAMOXIFEN CITRATE [Concomitant]
  5. DEXAMETHASONE [Concomitant]
  6. HERCEPTIN [Concomitant]
  7. BENADRYL [Concomitant]
  8. OXYCONTIN [Concomitant]
  9. NEUPOGEN [Concomitant]
  10. DECADRON [Concomitant]
     Dosage: 10 MG,
     Route: 042
  11. AREDIA [Suspect]
  12. IBUPROFEN [Concomitant]
  13. ZANTAC [Concomitant]
  14. TAXOL [Concomitant]

REACTIONS (50)
  - BACK PAIN [None]
  - RENAL FAILURE [None]
  - MUSCULOSKELETAL CHEST PAIN [None]
  - FALL [None]
  - HYPOKALAEMIA [None]
  - DISABILITY [None]
  - METASTASES TO BONE [None]
  - LEFT VENTRICULAR DYSFUNCTION [None]
  - CARDIOMYOPATHY [None]
  - HYPERLIPIDAEMIA [None]
  - DEPRESSION [None]
  - FATIGUE [None]
  - MUSCULOSKELETAL STIFFNESS [None]
  - CHILLS [None]
  - HAEMATOCHEZIA [None]
  - HYPERGLYCAEMIA [None]
  - SINUS TACHYCARDIA [None]
  - BENIGN GASTRIC NEOPLASM [None]
  - WEIGHT INCREASED [None]
  - MUSCLE STRAIN [None]
  - PAIN [None]
  - INTESTINAL ULCER [None]
  - BLOOD CHOLESTEROL INCREASED [None]
  - CONSTIPATION [None]
  - DYSPEPSIA [None]
  - WOUND [None]
  - NEUROPATHY PERIPHERAL [None]
  - ANXIETY [None]
  - NEUTROPENIA [None]
  - ABDOMINAL PAIN UPPER [None]
  - GASTROINTESTINAL HAEMORRHAGE [None]
  - ANHEDONIA [None]
  - BREAST CANCER METASTATIC [None]
  - OSTEOARTHRITIS [None]
  - HYPOTENSION [None]
  - DIARRHOEA [None]
  - ARTHRALGIA [None]
  - BONE LESION [None]
  - COMPRESSION FRACTURE [None]
  - SUICIDE ATTEMPT [None]
  - CARDIAC FAILURE CHRONIC [None]
  - COLITIS ULCERATIVE [None]
  - ANAEMIA [None]
  - GASTRITIS [None]
  - PYREXIA [None]
  - RADICULOPATHY [None]
  - OSTEONECROSIS OF JAW [None]
  - INJURY [None]
  - EXPOSED BONE IN JAW [None]
  - HYPERTENSION [None]
